FAERS Safety Report 5199174-7 (Version None)
Quarter: 2007Q1

REPORT INFORMATION
  Report Type: 
  Country: None (occurrence: None)
  Receive Date: 20070104
  Receipt Date: 20061226
  Transmission Date: 20070707
  Serious: Yes (Other)
  Sender: FDA-Public Use
  Company Number: FR-ABBOTT-06P-056-0354442-00

PATIENT
  Sex: Female
  Weight: 65 kg

DRUGS (1)
  1. SIBUTRAL 15 MG [Suspect]
     Indication: OVERWEIGHT
     Route: 048
     Dates: start: 20040101, end: 20061101

REACTIONS (7)
  - ANAEMIA [None]
  - ARTHRALGIA [None]
  - DEPRESSION [None]
  - DYSPNOEA [None]
  - FATIGUE [None]
  - GENERALISED OEDEMA [None]
  - PARAESTHESIA [None]
